FAERS Safety Report 17830267 (Version 1)
Quarter: 2020Q2

REPORT INFORMATION
  Report Type: Spontaneous
  Country: US (occurrence: US)
  Receive Date: 20200527
  Receipt Date: 20200527
  Transmission Date: 20200714
  Serious: Yes (Other)
  Sender: FDA-Public Use
  Company Number: US-AMGEN-USASP2020082710

PATIENT
  Age: 69 Year
  Sex: Female

DRUGS (2)
  1. REPATHA [Suspect]
     Active Substance: EVOLOCUMAB
     Indication: HYPERCHOLESTEROLAEMIA
     Dosage: 140 MILLIGRAM, Q2WK
     Route: 065
     Dates: start: 201810
  2. CLOPIDOGREL [Concomitant]
     Active Substance: CLOPIDOGREL BISULFATE
     Dosage: 75 MILLIGRAM, QD

REACTIONS (7)
  - Dermatitis acneiform [Unknown]
  - Product dispensing error [Unknown]
  - Injection site haemorrhage [Unknown]
  - Memory impairment [Unknown]
  - Wrong technique in product usage process [Unknown]
  - Impaired healing [Unknown]
  - Angiopathy [Unknown]

NARRATIVE: CASE EVENT DATE: 20200520
